FAERS Safety Report 4922654-3 (Version None)
Quarter: 2006Q1

REPORT INFORMATION
  Report Type: 
  Country: None (occurrence: None)
  Receive Date: 20060224
  Receipt Date: 20060120
  Transmission Date: 20060701
  Serious: Yes (Hospitalization)
  Sender: FDA-Public Use
  Company Number: JP-BOEHRINGER INGELHEIM PHARMACEUTICALS, INC.-2006-BP-00969NB

PATIENT
  Sex: Female

DRUGS (6)
  1. PERSANTIN [Suspect]
     Route: 048
  2. NORVASC [Concomitant]
     Route: 048
  3. HERBESSER [Concomitant]
     Route: 048
  4. KINEDAK [Concomitant]
     Route: 048
  5. METHYCOVAL (MECOBALAMIN) [Concomitant]
     Route: 048
  6. BUP-4 [Concomitant]
     Route: 048

REACTIONS (1)
  - DIVERTICULITIS INTESTINAL HAEMORRHAGIC [None]
